FAERS Safety Report 23472568 (Version 1)
Quarter: 2024Q1

REPORT INFORMATION
  Report Type: Spontaneous
  Country: CA (occurrence: CA)
  Receive Date: 20240202
  Receipt Date: 20240202
  Transmission Date: 20240409
  Serious: Yes (Other)
  Sender: FDA-Public Use
  Company Number: CA-AstraZeneca-2024A022215

PATIENT
  Age: 69 Year
  Sex: Female

DRUGS (26)
  1. ALVESCO [Suspect]
     Active Substance: CICLESONIDE
     Route: 055
  2. ALVESCO [Suspect]
     Active Substance: CICLESONIDE
     Route: 055
  3. BENRALIZUMAB [Suspect]
     Active Substance: BENRALIZUMAB
     Indication: Asthma
     Route: 058
  4. ALBUTEROL [Suspect]
     Active Substance: ALBUTEROL
  5. ROFLUMILAST [Suspect]
     Active Substance: ROFLUMILAST
     Route: 048
  6. ROFLUMILAST [Suspect]
     Active Substance: ROFLUMILAST
     Route: 048
  7. PANTOPRAZOLE SODIUM ANHYDROUS [Suspect]
     Active Substance: PANTOPRAZOLE SODIUM ANHYDROUS
  8. AZITHROMYCIN [Suspect]
     Active Substance: AZITHROMYCIN
  9. CALCIUM [Suspect]
     Active Substance: CALCIUM
  10. CALCIUM CARBONATE [Suspect]
     Active Substance: CALCIUM CARBONATE
  11. CELEBREX [Suspect]
     Active Substance: CELECOXIB
  12. CHLORPHENIRAMINE MALEATE\PSEUDOEPHEDRINE HYDROCHLORIDE [Suspect]
     Active Substance: CHLORPHENIRAMINE MALEATE\PSEUDOEPHEDRINE HYDROCHLORIDE
  13. FLUTICASONE PROPIONATE\SALMETEROL XINAFOATE [Suspect]
     Active Substance: FLUTICASONE PROPIONATE\SALMETEROL XINAFOATE
  14. HYDROXYZINE HYDROCHLORIDE [Suspect]
     Active Substance: HYDROXYZINE HYDROCHLORIDE
  15. IMODIUM [Suspect]
     Active Substance: LOPERAMIDE HYDROCHLORIDE
  16. OMALIZUMAB [Suspect]
     Active Substance: OMALIZUMAB
     Dosage: 225.0MG UNKNOWN
  17. PREDNISONE [Suspect]
     Active Substance: PREDNISONE
  18. SINGULAIR [Suspect]
     Active Substance: MONTELUKAST SODIUM
     Indication: Product used for unknown indication
     Dosage: 10.0MG UNKNOWN
  19. SINGULAIR [Suspect]
     Active Substance: MONTELUKAST SODIUM
     Indication: Product used for unknown indication
     Dosage: 10.0MG UNKNOWN
  20. SINGULAIR [Suspect]
     Active Substance: MONTELUKAST SODIUM
     Dosage: 10.0MG UNKNOWN
  21. SPIRIVA [Suspect]
     Active Substance: TIOTROPIUM BROMIDE MONOHYDRATE
  22. VITAMIN D [Suspect]
     Active Substance: VITAMIN D NOS
  23. VITAMIN D3 [Suspect]
     Active Substance: CHOLECALCIFEROL
  24. ZOPICLONE [Suspect]
     Active Substance: ZOPICLONE
  25. ZOPICLONE [Suspect]
     Active Substance: ZOPICLONE
     Dosage: 5.0MG UNKNOWN
  26. ZOPICLONE [Suspect]
     Active Substance: ZOPICLONE
     Dosage: 5.0MG UNKNOWN

REACTIONS (21)
  - Bacterial disease carrier [Unknown]
  - Asthma [Unknown]
  - Bronchial secretion retention [Unknown]
  - Bronchial wall thickening [Unknown]
  - Condition aggravated [Unknown]
  - Cough [Unknown]
  - Dyspnoea [Unknown]
  - Fall [Unknown]
  - Full blood count abnormal [Unknown]
  - Ill-defined disorder [Unknown]
  - Intervertebral disc protrusion [Unknown]
  - Malaise [Unknown]
  - Obstructive airways disorder [Unknown]
  - Rales [Unknown]
  - Spinal cord compression [Unknown]
  - Sputum discoloured [Unknown]
  - Upper limb fracture [Unknown]
  - Wheezing [Unknown]
  - Wrist fracture [Unknown]
  - Drug ineffective [Unknown]
  - Therapeutic product effect incomplete [Unknown]
